FAERS Safety Report 14108833 (Version 7)
Quarter: 2020Q1

REPORT INFORMATION
  Report Type: Spontaneous
  Country: US (occurrence: US)
  Receive Date: 20171019
  Receipt Date: 20200226
  Transmission Date: 20200409
  Serious: Yes (Hospitalization)
  Sender: FDA-Public Use
  Company Number: US-ACTELION-A-NJ2017-161079

PATIENT
  Sex: Female

DRUGS (1)
  1. OPSUMIT [Suspect]
     Active Substance: MACITENTAN
     Indication: PULMONARY ARTERIAL HYPERTENSION
     Dosage: 10 MG, QD
     Route: 048
     Dates: start: 20160718

REACTIONS (6)
  - Urinary tract infection [Unknown]
  - Peripheral swelling [Unknown]
  - Dyspnoea [Recovered/Resolved]
  - Oedema [Recovered/Resolved]
  - Hospitalisation [Unknown]
  - Cardiac failure congestive [Unknown]
